FAERS Safety Report 21185950 (Version 2)
Quarter: 2023Q1

REPORT INFORMATION
  Report Type: Report from Study
  Country: US (occurrence: US)
  Receive Date: 20220808
  Receipt Date: 20230213
  Transmission Date: 20230418
  Serious: Yes (Other)
  Sender: FDA-Public Use
  Company Number: US-KOREA IPSEN Pharma-2022-22174

PATIENT
  Age: 61 Year
  Sex: Male

DRUGS (1)
  1. SOMATULINE DEPOT [Suspect]
     Active Substance: LANREOTIDE ACETATE
     Indication: Carcinoid tumour of the stomach
     Route: 058
     Dates: start: 2020

REACTIONS (7)
  - Neoplasm [Recovered/Resolved]
  - Basal cell carcinoma [Not Recovered/Not Resolved]
  - Rash [Not Recovered/Not Resolved]
  - Pruritus [Not Recovered/Not Resolved]
  - Anxiety [Unknown]
  - Flushing [Unknown]
  - Asthenia [Not Recovered/Not Resolved]
